FAERS Safety Report 4776165-9 (Version None)
Quarter: 2005Q3

REPORT INFORMATION
  Report Type: 
  Country: None (occurrence: None)
  Receive Date: 20050914
  Receipt Date: 20050211
  Transmission Date: 20060218
  Serious: Yes (Other)
  Sender: FDA-Public Use
  Company Number: 163-20785-05020451

PATIENT
  Sex: 0

DRUGS (4)
  1. THALOMID [Suspect]
     Indication: METASTASES TO CENTRAL NERVOUS SYSTEM
     Dosage: ORAL
     Route: 047
  2. TYLENOL 3 (PANADEINE CO) (UNKNOWN) [Suspect]
  3. RADIATION THERAPY (UNKNOWN) [Suspect]
     Indication: METASTASES TO CENTRAL NERVOUS SYSTEM
  4. CHEMOTHERAPY (UNKNOWN) [Suspect]

REACTIONS (3)
  - ILEUS [None]
  - ILEUS PARALYTIC [None]
  - INTESTINAL OBSTRUCTION [None]
